FAERS Safety Report 7135783-3 (Version None)
Quarter: 2010Q4

REPORT INFORMATION
  Report Type: 
  Country: None (occurrence: None)
  Receive Date: 20101203
  Receipt Date: 20101124
  Transmission Date: 20110411
  Serious: Yes (Life-Threatening, Hospitalization)
  Sender: FDA-Public Use
  Company Number: FR-PFIZER INC-2010156534

PATIENT
  Sex: Male
  Weight: 2.3 kg

DRUGS (2)
  1. LYRICA [Suspect]
     Indication: NEURALGIA
     Dosage: 250 MG DAILY
     Route: 064
     Dates: end: 20100101
  2. LYRICA [Suspect]
     Dosage: 125 MG DAILY
     Route: 064
     Dates: start: 20100101

REACTIONS (7)
  - DRUG EXPOSURE DURING PREGNANCY [None]
  - GROWTH RETARDATION [None]
  - HEPATIC FAILURE [None]
  - HYPERTHERMIA [None]
  - HYPOTONIA NEONATAL [None]
  - METABOLIC ACIDOSIS [None]
  - NEONATAL ANOXIA [None]
